FAERS Safety Report 10457099 (Version 1)
Quarter: 2014Q3

REPORT INFORMATION
  Report Type: Spontaneous
  Country: US (occurrence: None)
  Receive Date: 20140909
  Receipt Date: 20140909
  Transmission Date: 20150326
  Serious: Yes (Other)
  Sender: FDA-Public Use
  Company Number: 1713747-2014-999126

PATIENT
  Age: 34 Year
  Sex: Male
  Weight: 127 kg

DRUGS (2)
  1. LIBERTY CYCLER CASSETTE [Concomitant]
     Active Substance: DEVICE
  2. DELFLEX WITH DEXTROSE 2.5% LOW MAGNESIUM LOW CALCIUM [Suspect]
     Active Substance: CALCIUM CHLORIDE\DEXTROSE MONOHYDRATE\MAGNESIUM CHLORIDE\SODIUM CHLORIDE\SODIUM LACTATE
     Indication: PERITONEAL DIALYSIS
     Route: 033

REACTIONS (1)
  - Abdominal pain [None]

NARRATIVE: CASE EVENT DATE: 20140822
